FAERS Safety Report 15517533 (Version 1)
Quarter: 2018Q4

REPORT INFORMATION
  Report Type: Spontaneous
  Country: FR (occurrence: FR)
  Receive Date: 20181017
  Receipt Date: 20181017
  Transmission Date: 20190205
  Serious: Yes (Death)
  Sender: FDA-Public Use
  Company Number: FR-PFIZER INC-2018418400

PATIENT
  Age: 47 Year
  Sex: Male

DRUGS (5)
  1. AMLOR [Suspect]
     Active Substance: AMLODIPINE BESYLATE
  2. LYRICA [Suspect]
     Active Substance: PREGABALIN
  3. METHADONE AP HP [Suspect]
     Active Substance: METHADONE HYDROCHLORIDE
  4. NOCTAMIDE [Suspect]
     Active Substance: LORMETAZEPAM
  5. TRANXENE [Suspect]
     Active Substance: CLORAZEPATE DIPOTASSIUM

REACTIONS (2)
  - Drug dependence [Fatal]
  - Death [Fatal]
